FAERS Safety Report 5157183-8 (Version None)
Quarter: 2006Q4

REPORT INFORMATION
  Report Type: 
  Country: None (occurrence: None)
  Receive Date: 20061127
  Receipt Date: 20061011
  Transmission Date: 20070319
  Serious: Yes (Hospitalization, Other)
  Sender: FDA-Public Use
  Company Number: AU-ELI_LILLY_AND_COMPANY-AU200610003165

PATIENT
  Age: 22 Year
  Sex: Male

DRUGS (7)
  1. ZYPREXA [Suspect]
     Indication: BIPOLAR DISORDER
     Dosage: 10 MG, EACH EVENING
  2. ZYPREXA [Suspect]
     Dosage: 5 MG, UNK
  3. ZYPREXA [Suspect]
     Dosage: 20 MG, UNK
  4. LITHIUM CARBONATE [Concomitant]
     Dosage: 90 ML, EACH EVENING
  5. STRATTERA [Suspect]
     Indication: ATTENTION DEFICIT/HYPERACTIVITY DISORDER
     Dosage: 10 MG, DAILY (1/D)
  6. STRATTERA [Suspect]
     Dosage: 10 MG, UNK
  7. STRATTERA [Suspect]
     Dosage: 30 MG, UNK

REACTIONS (5)
  - CEREBRAL CYST [None]
  - HOMICIDAL IDEATION [None]
  - MELANOCYTIC NAEVUS [None]
  - PSYCHOTIC DISORDER [None]
  - SUICIDAL IDEATION [None]
